FAERS Safety Report 5845384-2 (Version None)
Quarter: 2008Q3

REPORT INFORMATION
  Report Type: 
  Country: None (occurrence: None)
  Receive Date: 20080814
  Receipt Date: 20080811
  Transmission Date: 20090109
  Serious: Yes (Hospitalization)
  Sender: FDA-Public Use
  Company Number: DE-MERCK-0807DEU00077

PATIENT
  Age: 64 Year
  Sex: Female
  Weight: 65 kg

DRUGS (5)
  1. JANUVIA [Suspect]
     Indication: TYPE 2 DIABETES MELLITUS
     Route: 048
     Dates: start: 20080626
  2. GLYBURIDE [Suspect]
     Indication: TYPE 2 DIABETES MELLITUS
     Route: 048
     Dates: start: 20080626
  3. FUROSEMIDE [Concomitant]
     Route: 048
  4. SPIRONOLACTONE [Concomitant]
     Route: 048
  5. METOPROLOL [Concomitant]
     Route: 048

REACTIONS (1)
  - HYPOGLYCAEMIA [None]
